FAERS Safety Report 5161078-3 (Version None)
Quarter: 2006Q4

REPORT INFORMATION
  Report Type: 
  Country: None (occurrence: None)
  Receive Date: 20061130
  Receipt Date: 20061109
  Transmission Date: 20070319
  Serious: Yes (Hospitalization)
  Sender: FDA-Public Use
  Company Number: JP-BAYER-200611193BYL

PATIENT
  Age: 54 Year
  Sex: Male

DRUGS (6)
  1. ASPIRIN [Suspect]
     Dosage: TOTAL DAILY DOSE: 100 MG  UNIT DOSE: 100 MG
     Route: 048
     Dates: start: 20040301
  2. ADALAT [Suspect]
     Route: 048
     Dates: start: 20040301
  3. BLOPRESS [Suspect]
     Route: 048
  4. LASIX [Suspect]
     Route: 048
  5. MEVALOTIN [Suspect]
     Route: 048
  6. URIEF [Suspect]
     Route: 048

REACTIONS (1)
  - JAUNDICE [None]
